FAERS Safety Report 20021730 (Version 1)
Quarter: 2021Q4

REPORT INFORMATION
  Report Type: Report from Study
  Country: FR (occurrence: FR)
  Receive Date: 20211101
  Receipt Date: 20211101
  Transmission Date: 20220303
  Serious: Yes (Death, Life-Threatening, Other)
  Sender: FDA-Public Use
  Company Number: FR-GILEAD-2020-0459078AA

PATIENT
  Age: 49 Year
  Sex: Male
  Weight: 98 kg

DRUGS (5)
  1. REMDESIVIR [Suspect]
     Active Substance: REMDESIVIR
     Indication: Coronavirus infection
     Dosage: 200 MG, QD
     Route: 048
     Dates: start: 20200404, end: 20200405
  2. CEFTRIAXONE SODIUM [Concomitant]
     Active Substance: CEFTRIAXONE SODIUM
     Dosage: 2.0 G
     Route: 042
     Dates: start: 20200404, end: 20200405
  3. LEVOFLOXACIN [Concomitant]
     Active Substance: LEVOFLOXACIN
     Dosage: 1.0 G
     Route: 042
     Dates: start: 20200404, end: 20200405
  4. FONDAPARINUX [Concomitant]
     Active Substance: FONDAPARINUX
     Dosage: 2.5 MG
     Route: 042
     Dates: start: 20200404, end: 20200405
  5. CALCIPARINE [Concomitant]
     Active Substance: HEPARIN CALCIUM
     Dosage: 0.2
     Dates: start: 20200409, end: 20200409

REACTIONS (7)
  - Acute respiratory distress syndrome [Fatal]
  - Cardiovascular disorder [Fatal]
  - Acute kidney injury [Not Recovered/Not Resolved]
  - Oxygen saturation decreased [Recovered/Resolved]
  - Shock haemorrhagic [Not Recovered/Not Resolved]
  - Rhabdomyolysis [Not Recovered/Not Resolved]
  - Myositis [Not Recovered/Not Resolved]

NARRATIVE: CASE EVENT DATE: 20200404
